FAERS Safety Report 17440753 (Version 1)
Quarter: 2020Q1

REPORT INFORMATION
  Report Type: Spontaneous
  Country: DE (occurrence: DE)
  Receive Date: 20200220
  Receipt Date: 20200220
  Transmission Date: 20200409
  Serious: Yes (Death)
  Sender: FDA-Public Use
  Company Number: NVSC2020DE046626

PATIENT
  Age: 66 Year
  Sex: Male

DRUGS (3)
  1. PREDNISOLONE. [Suspect]
     Active Substance: PREDNISOLONE
     Indication: PRODUCT USED FOR UNKNOWN INDICATION
     Dosage: UNK
     Route: 065
  2. BENDAMUSTINE [Interacting]
     Active Substance: BENDAMUSTINE
     Indication: XANTHOGRANULOMA
     Dosage: UNK
     Route: 065
  3. BORTEZOMIB. [Interacting]
     Active Substance: BORTEZOMIB
     Indication: PRODUCT USED FOR UNKNOWN INDICATION
     Dosage: UNK
     Route: 065

REACTIONS (4)
  - Organ failure [Fatal]
  - Septic shock [Fatal]
  - Retroperitoneal haematoma [Fatal]
  - Pneumonia [Fatal]
